FAERS Safety Report 10235310 (Version 1)
Quarter: 2014Q2

REPORT INFORMATION
  Report Type: Spontaneous
  Country: US (occurrence: None)
  Receive Date: 20140612
  Receipt Date: 20140612
  Transmission Date: 20141212
  Serious: Yes (Hospitalization)
  Sender: FDA-Public Use
  Company Number: None

PATIENT
  Age: 38 Year
  Sex: Female
  Weight: 48.99 kg

DRUGS (1)
  1. BUPROPION [Suspect]
     Indication: SLEEP DISORDER
     Dosage: 1
     Route: 048
     Dates: start: 20140528, end: 20140610

REACTIONS (6)
  - Nausea [None]
  - Vomiting [None]
  - Convulsion [None]
  - Musculoskeletal stiffness [None]
  - Tongue biting [None]
  - Incontinence [None]
